FAERS Safety Report 5147485-3 (Version None)
Quarter: 2006Q4

REPORT INFORMATION
  Report Type: 
  Country: None (occurrence: None)
  Receive Date: 20061106
  Receipt Date: 20061025
  Transmission Date: 20070319
  Serious: Yes (Other)
  Sender: FDA-Public Use
  Company Number: 2006110027

PATIENT
  Age: 54 Year
  Sex: Female
  Weight: 58.9676 kg

DRUGS (9)
  1. CHANTIX [Suspect]
     Indication: SMOKING CESSATION THERAPY
     Dosage: 1 MG (0.5 MG, 2 IN 1 D)
     Dates: start: 20060824, end: 20060919
  2. METOPROLOL [Concomitant]
  3. SINGULAIR [Concomitant]
  4. PREVACID [Concomitant]
  5. CELEXA [Concomitant]
  6. ACTONEL [Concomitant]
  7. ASTELIN [Concomitant]
  8. SPIRIVA [Concomitant]
  9. ALBUTEROL [Concomitant]

REACTIONS (1)
  - NAUSEA [None]
